FAERS Safety Report 9321708 (Version 2)
Quarter: 2013Q2

REPORT INFORMATION
  Report Type: Spontaneous
  Country: US (occurrence: None)
  Receive Date: 20130528
  Receipt Date: 20130528
  Transmission Date: 20140414
  Serious: Yes (Hospitalization)
  Sender: FDA-Public Use
  Company Number: 2012AP001428

PATIENT
  Age: 65 Year
  Sex: Male
  Weight: 123.5 kg

DRUGS (9)
  1. FERRIPROX [Suspect]
     Indication: IRON METABOLISM DISORDER
     Route: 048
     Dates: start: 20120206, end: 20120507
  2. TELMISARTAN [Concomitant]
  3. GABAPENTIN [Concomitant]
  4. VARDENAFIL [Concomitant]
  5. SIMVASTATIN [Concomitant]
  6. MELOXICAM [Concomitant]
  7. ESOMEPRAZOLE [Concomitant]
  8. MIRALAX [Concomitant]
  9. CYANOCOBALAMIN [Concomitant]

REACTIONS (15)
  - Agranulocytosis [None]
  - Hypotension [None]
  - Sepsis [None]
  - Loss of consciousness [None]
  - Staphylococcus test positive [None]
  - Nasopharyngitis [None]
  - Influenza like illness [None]
  - Platelet count decreased [None]
  - Respiratory failure [None]
  - Deep vein thrombosis [None]
  - Renal failure acute [None]
  - CSF test abnormal [None]
  - Retroperitoneal haematoma [None]
  - Dialysis [None]
  - Enterobacter test positive [None]
